FAERS Safety Report 7118320-9 (Version None)
Quarter: 2010Q4

REPORT INFORMATION
  Report Type: 
  Country: None (occurrence: None)
  Receive Date: 20101123
  Receipt Date: 20101111
  Transmission Date: 20110411
  Serious: Yes (Other)
  Sender: FDA-Public Use
  Company Number: US-JNJFOC-20101105699

PATIENT
  Sex: Female
  Weight: 68.04 kg

DRUGS (3)
  1. ELMIRON [Suspect]
     Indication: CYSTITIS INTERSTITIAL
     Route: 048
  2. ANALGESIC [Concomitant]
     Indication: ANALGESIC THERAPY
     Route: 048
  3. SANCTURA [Concomitant]
     Indication: MUSCLE SPASMS
     Route: 048

REACTIONS (2)
  - ABDOMINAL DISCOMFORT [None]
  - THERAPEUTIC RESPONSE DELAYED [None]
